FAERS Safety Report 19083104 (Version 1)
Quarter: 2021Q2

REPORT INFORMATION
  Report Type: Report from Study
  Country: FR (occurrence: FR)
  Receive Date: 20210401
  Receipt Date: 20210401
  Transmission Date: 20210717
  Serious: Yes (Hospitalization, Other)
  Sender: FDA-Public Use
  Company Number: FR-BRISTOL-MYERS SQUIBB COMPANY-BMS-2021-029312

PATIENT
  Age: 37 Year
  Sex: Female
  Weight: 80 kg

DRUGS (27)
  1. NEO?CODION /01425101/ [Concomitant]
     Active Substance: CODEINE\GRINDELIA HIRSUTULA WHOLE\SULFOGAIACOL
     Indication: COUGH
     Dosage: UNK
     Route: 065
     Dates: start: 201607
  2. ARESTAL [Concomitant]
     Active Substance: LOPERAMIDE OXIDE
     Indication: PROPHYLAXIS
     Dosage: UNK
     Route: 065
     Dates: start: 201609
  3. LEVOTHYROX [Concomitant]
     Active Substance: LEVOTHYROXINE
     Dosage: 62.5 UG, UNK
     Route: 065
     Dates: start: 201512, end: 201602
  4. LEVOTHYROX [Concomitant]
     Active Substance: LEVOTHYROXINE
     Dosage: 125 UG, UNK
     Route: 065
     Dates: start: 201504, end: 201605
  5. NIVOLUMAB [Suspect]
     Active Substance: NIVOLUMAB
     Indication: PRODUCT USED FOR UNKNOWN INDICATION
     Dosage: 3 MILLIGRAM/KILOGRAM, EVERY 15 DAYS (CYCLICAL)
     Route: 065
     Dates: start: 201703
  6. SPASFON LYOC [Concomitant]
     Active Substance: PHLOROGLUCINOL
     Indication: PROPHYLAXIS
     Dosage: UNK
     Route: 065
     Dates: start: 201609
  7. LEVOTHYROX [Concomitant]
     Active Substance: LEVOTHYROXINE
     Dosage: 75 UG, UNK
     Route: 065
     Dates: start: 201506, end: 201510
  8. LEVOTHYROX [Concomitant]
     Active Substance: LEVOTHYROXINE
     Dosage: 150 UG, UNK
     Route: 065
     Dates: start: 201609
  9. LEVOTHYROX [Concomitant]
     Active Substance: LEVOTHYROXINE
     Dosage: 125 UG, UNK
     Route: 065
     Dates: start: 201608, end: 201609
  10. INLYTA [Suspect]
     Active Substance: AXITINIB
     Indication: METASTATIC RENAL CELL CARCINOMA
     Dosage: 5 MG, 2X/DAY (2 WEEKS/3)
     Route: 048
     Dates: start: 20160520
  11. SMECTA [Concomitant]
     Active Substance: MONTMORILLONITE
     Indication: DIARRHOEA
     Dosage: UNK
     Route: 065
     Dates: start: 201506
  12. LEVOTHYROX [Concomitant]
     Active Substance: LEVOTHYROXINE
     Indication: HYPOTHYROIDISM
     Dosage: 62.5 UG, UNK
     Route: 065
     Dates: start: 201503, end: 201505
  13. LEVOTHYROX [Concomitant]
     Active Substance: LEVOTHYROXINE
     Dosage: 50 UG, UNK
     Route: 065
     Dates: start: 201510, end: 201512
  14. TIORFAN [Concomitant]
     Active Substance: RACECADOTRIL
     Indication: DIARRHOEA
     Dosage: UNK
     Route: 065
     Dates: start: 201605
  15. INLYTA [Suspect]
     Active Substance: AXITINIB
     Dosage: 3 MILLIGRAM, BID
     Route: 048
     Dates: start: 20160719, end: 201609
  16. PARACETAMOL [Concomitant]
     Active Substance: ACETAMINOPHEN
     Indication: PAIN
     Dosage: UNK
     Route: 065
     Dates: start: 201610
  17. LEVOTHYROX [Concomitant]
     Active Substance: LEVOTHYROXINE
     Indication: BLOOD THYROID STIMULATING HORMONE INCREASED
     Dosage: 100 UG, UNK
     Route: 065
     Dates: start: 201606, end: 201608
  18. LEVOTHYROX [Concomitant]
     Active Substance: LEVOTHYROXINE
     Dosage: 100 UG, UNK
     Route: 065
     Dates: start: 201602, end: 201604
  19. LEVOTHYROX [Concomitant]
     Active Substance: LEVOTHYROXINE
     Dosage: 150 UG, UNK
     Route: 065
     Dates: start: 201605, end: 201606
  20. TITANOREINE /02208801/ [Concomitant]
     Indication: HAEMORRHOIDS
     Dosage: UNK
     Route: 065
     Dates: start: 201502
  21. TRONOTHANE [Concomitant]
     Active Substance: PRAMOXINE
     Indication: ANAL INFLAMMATION
     Dosage: UNK
     Route: 065
     Dates: start: 201508
  22. GAVISCON /01405501/ [Concomitant]
     Active Substance: SODIUM ALGINATE\SODIUM BICARBONATE
     Indication: PROPHYLAXIS
     Dosage: UNK
     Route: 065
     Dates: start: 201602
  23. INLYTA [Suspect]
     Active Substance: AXITINIB
     Dosage: 3 MG 2X/DAY (5 DAYS/7)
     Route: 048
     Dates: start: 20161017, end: 20170228
  24. INLYTA [Suspect]
     Active Substance: AXITINIB
     Dosage: 10 MG EVERY SECOND DAY
     Route: 048
     Dates: start: 20160621
  25. PROCTOLOG /01026901/ [Concomitant]
     Indication: ANAL INFLAMMATION
     Dosage: UNK
     Route: 065
     Dates: start: 201508
  26. VOGALENE [Concomitant]
     Active Substance: METOPIMAZINE
     Indication: PROPHYLAXIS OF NAUSEA AND VOMITING
     Dosage: UNK
     Route: 065
     Dates: start: 201607
  27. TOPALGIC [Concomitant]
     Indication: PAIN
     Dosage: UNK
     Route: 065
     Dates: start: 201609

REACTIONS (5)
  - Ischaemic stroke [Recovered/Resolved]
  - Asthenia [Recovered/Resolved]
  - Intentional product use issue [Unknown]
  - Pharyngitis [Recovered/Resolved]
  - Pyrexia [Recovered/Resolved]

NARRATIVE: CASE EVENT DATE: 201703
